FAERS Safety Report 25284752 (Version 1)
Quarter: 2025Q2

REPORT INFORMATION
  Report Type: Spontaneous
  Country: US (occurrence: US)
  Receive Date: 20250508
  Receipt Date: 20250508
  Transmission Date: 20250716
  Serious: No
  Sender: ELI LILLY AND COMPANY
  Company Number: US-ELI_LILLY_AND_COMPANY-US202505004790

PATIENT
  Age: 79 Year
  Sex: Male

DRUGS (16)
  1. ZEPBOUND [Suspect]
     Active Substance: TIRZEPATIDE
     Indication: Positive airway pressure therapy
     Dosage: 2.5 MG, WEEKLY (1/W)
     Route: 058
     Dates: start: 202504
  2. ZEPBOUND [Suspect]
     Active Substance: TIRZEPATIDE
     Indication: Positive airway pressure therapy
     Dosage: 2.5 MG, WEEKLY (1/W)
     Route: 058
     Dates: start: 202504
  3. ZEPBOUND [Suspect]
     Active Substance: TIRZEPATIDE
     Indication: Positive airway pressure therapy
     Dosage: 2.5 MG, WEEKLY (1/W)
     Route: 058
     Dates: start: 202504
  4. ZEPBOUND [Suspect]
     Active Substance: TIRZEPATIDE
     Indication: Positive airway pressure therapy
     Dosage: 2.5 MG, WEEKLY (1/W)
     Route: 058
     Dates: start: 202504
  5. ZEPBOUND [Suspect]
     Active Substance: TIRZEPATIDE
     Indication: Sleep apnoea syndrome
  6. ZEPBOUND [Suspect]
     Active Substance: TIRZEPATIDE
     Indication: Sleep apnoea syndrome
  7. ZEPBOUND [Suspect]
     Active Substance: TIRZEPATIDE
     Indication: Sleep apnoea syndrome
  8. ZEPBOUND [Suspect]
     Active Substance: TIRZEPATIDE
     Indication: Sleep apnoea syndrome
  9. ZEPBOUND [Suspect]
     Active Substance: TIRZEPATIDE
     Indication: Sleep apnoea syndrome
     Dosage: 5 MG, WEEKLY (1/W)
     Route: 058
  10. ZEPBOUND [Suspect]
     Active Substance: TIRZEPATIDE
     Indication: Sleep apnoea syndrome
     Dosage: 5 MG, WEEKLY (1/W)
     Route: 058
  11. ZEPBOUND [Suspect]
     Active Substance: TIRZEPATIDE
     Indication: Sleep apnoea syndrome
     Dosage: 5 MG, WEEKLY (1/W)
     Route: 058
  12. ZEPBOUND [Suspect]
     Active Substance: TIRZEPATIDE
     Indication: Sleep apnoea syndrome
     Dosage: 5 MG, WEEKLY (1/W)
     Route: 058
  13. ZEPBOUND [Suspect]
     Active Substance: TIRZEPATIDE
     Indication: Positive airway pressure therapy
  14. ZEPBOUND [Suspect]
     Active Substance: TIRZEPATIDE
     Indication: Positive airway pressure therapy
  15. ZEPBOUND [Suspect]
     Active Substance: TIRZEPATIDE
     Indication: Positive airway pressure therapy
  16. ZEPBOUND [Suspect]
     Active Substance: TIRZEPATIDE
     Indication: Positive airway pressure therapy

REACTIONS (2)
  - Constipation [Recovered/Resolved]
  - Dyspepsia [Recovered/Resolved]
